FAERS Safety Report 8186567-9 (Version None)
Quarter: 2012Q1

REPORT INFORMATION
  Report Type: 
  Country: None (occurrence: None)
  Receive Date: 20120306
  Receipt Date: 20120224
  Transmission Date: 20120608
  Serious: Yes (Other)
  Sender: FDA-Public Use
  Company Number: US-JNJFOC-20120213195

PATIENT
  Sex: Female
  Weight: 107.5 kg

DRUGS (2)
  1. LEVOTHYROXINE SODIUM [Concomitant]
     Indication: THYROID DISORDER
     Route: 048
     Dates: start: 20090101
  2. REMICADE [Suspect]
     Indication: RHEUMATOID ARTHRITIS
     Route: 042
     Dates: start: 20110601

REACTIONS (5)
  - DRUG INEFFECTIVE [None]
  - DYSPNOEA [None]
  - ABDOMINAL PAIN UPPER [None]
  - WEIGHT INCREASED [None]
  - PAIN [None]
